FAERS Safety Report 24227161 (Version 1)
Quarter: 2024Q3

REPORT INFORMATION
  Report Type: Spontaneous
  Country: CA (occurrence: CA)
  Receive Date: 20240820
  Receipt Date: 20240820
  Transmission Date: 20241017
  Serious: Yes (Other)
  Sender: MYLAN
  Company Number: CA-MYLANLABS-2024M1075370

PATIENT
  Age: 16 Year
  Sex: Male

DRUGS (5)
  1. VALPROIC ACID [Suspect]
     Active Substance: VALPROIC ACID
     Indication: Epilepsy
     Dosage: UNK
     Route: 065
  2. LEVETIRACETAM [Suspect]
     Active Substance: LEVETIRACETAM
     Indication: Epilepsy
     Dosage: UNK
     Route: 065
  3. LACOSAMIDE [Suspect]
     Active Substance: LACOSAMIDE
     Indication: Epilepsy
     Dosage: UNK
     Route: 065
  4. TETRABENAZINE [Concomitant]
     Active Substance: TETRABENAZINE
     Indication: Movement disorder
     Dosage: UNK, LOW DOSE
     Route: 065
  5. TETRABENAZINE [Concomitant]
     Active Substance: TETRABENAZINE
     Indication: Hyperkinesia

REACTIONS (1)
  - Drug ineffective [Unknown]
